FAERS Safety Report 5848829-7 (Version None)
Quarter: 2008Q3

REPORT INFORMATION
  Report Type: 
  Country: None (occurrence: None)
  Receive Date: 20080818
  Receipt Date: 20080806
  Transmission Date: 20090109
  Serious: Yes (Hospitalization)
  Sender: FDA-Public Use
  Company Number: GB-PFIZER INC-2008066207

PATIENT
  Age: 48 Year
  Sex: Female
  Weight: 81 kg

DRUGS (5)
  1. CHANTIX [Suspect]
     Indication: SMOKING CESSATION THERAPY
     Route: 048
     Dates: start: 20080709, end: 20080714
  2. BETNOVATE [Concomitant]
     Indication: DERMATITIS ATOPIC
     Route: 061
  3. CLARITHROMYCIN [Concomitant]
     Indication: LOWER RESPIRATORY TRACT INFECTION
     Route: 048
     Dates: start: 20080709, end: 20080710
  4. AMILORIDE HCL AND HYDROCHLOROTHIAZIDE [Concomitant]
     Indication: OEDEMA
     Route: 048
  5. SALBUTAMOL [Concomitant]
     Indication: CHRONIC OBSTRUCTIVE PULMONARY DISEASE
     Route: 055

REACTIONS (7)
  - BLOOD GLUCOSE DECREASED [None]
  - BLOOD PRESSURE DECREASED [None]
  - DIZZINESS [None]
  - LOSS OF CONSCIOUSNESS [None]
  - NAUSEA [None]
  - PALPITATIONS [None]
  - SYNCOPE [None]
